FAERS Safety Report 7625704-9 (Version None)
Quarter: 2011Q3

REPORT INFORMATION
  Report Type: 
  Country: None (occurrence: None)
  Receive Date: 20110713
  Receipt Date: 20110629
  Transmission Date: 20111222
  Serious: Yes (Hospitalization)
  Sender: FDA-Public Use
  Company Number: CN-JNJFOC-201105 05350

PATIENT
  Age: 67 Year
  Sex: Male
  Weight: 57 kg

DRUGS (1)
  1. DECITABINE [Suspect]
     Indication: MYELODYSPLASTIC SYNDROME
     Dosage: 32 MG, 1 IN 1 DAY, INTRAVENOUS
     Route: 042
     Dates: start: 20110402, end: 20110406

REACTIONS (1)
  - ANAL INFECTION [None]
